FAERS Safety Report 4486869-3 (Version None)
Quarter: 2004Q4

REPORT INFORMATION
  Report Type: 
  Country: None (occurrence: None)
  Receive Date: 20041022
  Receipt Date: 20041013
  Transmission Date: 20050328
  Serious: Yes (Life-Threatening)
  Sender: FDA-Public Use
  Company Number: 200410973BVD

PATIENT

DRUGS (1)
  1. LEVITRA [Suspect]
     Dosage: UNK
     Route: 065

REACTIONS (1)
  - ANEURYSM RUPTURED [None]
